FAERS Safety Report 7123982-6 (Version None)
Quarter: 2010Q4

REPORT INFORMATION
  Report Type: 
  Country: None (occurrence: None)
  Receive Date: 20101126
  Receipt Date: 20101123
  Transmission Date: 20110411
  Serious: Yes (Other)
  Sender: FDA-Public Use
  Company Number: US-PFIZER INC-2010157101

PATIENT
  Sex: Female
  Weight: 59 kg

DRUGS (10)
  1. PROVERA [Suspect]
     Indication: HORMONE REPLACEMENT THERAPY
     Dosage: 10 MG, UNK
     Dates: start: 19940101, end: 20000101
  2. PROVERA [Suspect]
     Indication: MENOPAUSE
  3. PREMARIN [Suspect]
     Indication: HORMONE REPLACEMENT THERAPY
     Dosage: 0.625 MG, UNK
     Dates: start: 19941101, end: 20020401
  4. PREMARIN [Suspect]
     Indication: MENOPAUSE
  5. MEDROXYPROGESTERONE ACETATE [Suspect]
     Indication: HORMONE REPLACEMENT THERAPY
     Dosage: 10 MG, UNK
     Dates: start: 19990101, end: 20020101
  6. MEDROXYPROGESTERONE ACETATE [Suspect]
     Indication: MENOPAUSE
  7. PREMPRO [Suspect]
     Indication: HORMONE REPLACEMENT THERAPY
     Dosage: UNK
     Dates: start: 19971215, end: 19971229
  8. PREMPRO [Suspect]
     Indication: MENOPAUSE
  9. FEMHRT [Suspect]
     Indication: HORMONE REPLACEMENT THERAPY
     Dosage: 1 MG/5MCG
     Dates: start: 20000101, end: 20010101
  10. FEMHRT [Suspect]
     Indication: MENOPAUSE

REACTIONS (1)
  - OVARIAN CANCER [None]
